FAERS Safety Report 5203533-3 (Version None)
Quarter: 2007Q1

REPORT INFORMATION
  Report Type: 
  Country: None (occurrence: None)
  Receive Date: 20070105
  Receipt Date: 20061227
  Transmission Date: 20070707
  Serious: Yes (Disabling)
  Sender: FDA-Public Use
  Company Number: HQWYE092202JAN07

PATIENT
  Age: 32 Year
  Sex: Female

DRUGS (4)
  1. CEFIXIME CHEWABLE [Suspect]
     Indication: GASTROENTERITIS
     Route: 048
     Dates: start: 20061210
  2. CEFIXIME CHEWABLE [Suspect]
     Indication: LISTERIOSIS
     Route: 048
     Dates: start: 20061210
  3. ULTRA-LEUVRE (SACCHAROMYCES BOULARDII) [Concomitant]
  4. SPASFON (PHLOROGLUCINOL/TRIMETHYLPHLOROGLUCINOL) [Concomitant]

REACTIONS (3)
  - ARTHRALGIA [None]
  - DRUG EXPOSURE DURING PREGNANCY [None]
  - PRURITUS [None]
